FAERS Safety Report 21327078 (Version 2)
Quarter: 2022Q3

REPORT INFORMATION
  Report Type: Report from Study
  Country: CA (occurrence: CA)
  Receive Date: 20220913
  Receipt Date: 20220926
  Transmission Date: 20221026
  Serious: Yes (Hospitalization, Other)
  Sender: FDA-Public Use
  Company Number: CA-NOVARTISPH-NVSC2022CA187579

PATIENT
  Age: 60 Year
  Sex: Female

DRUGS (2)
  1. HYRIMOZ [Suspect]
     Active Substance: ADALIMUMAB-ADAZ
     Indication: Rheumatoid arthritis
     Dosage: 40 MG
     Route: 058
     Dates: start: 20220711
  2. HYRIMOZ [Suspect]
     Active Substance: ADALIMUMAB-ADAZ
     Indication: Synovial rupture

REACTIONS (7)
  - Phlebitis [Unknown]
  - Haemorrhagic disorder [Unknown]
  - Oedema peripheral [Unknown]
  - Arthritis [Not Recovered/Not Resolved]
  - Peripheral swelling [Unknown]
  - Pain in extremity [Unknown]
  - Product use in unapproved indication [Unknown]

NARRATIVE: CASE EVENT DATE: 20220801
